FAERS Safety Report 7398941-9 (Version None)
Quarter: 2011Q2

REPORT INFORMATION
  Report Type: 
  Country: None (occurrence: None)
  Receive Date: 20110407
  Receipt Date: 20110331
  Transmission Date: 20111010
  Serious: No
  Sender: FDA-Public Use
  Company Number: US-PFIZER INC-2011072669

PATIENT
  Sex: Female

DRUGS (1)
  1. PREMARIN [Suspect]
     Dosage: UNK

REACTIONS (5)
  - BACK PAIN [None]
  - PRURITUS [None]
  - PAIN IN EXTREMITY [None]
  - RASH [None]
  - PELVIC PAIN [None]
